FAERS Safety Report 23183922 (Version 2)
Quarter: 2024Q1

REPORT INFORMATION
  Report Type: Spontaneous
  Country: US (occurrence: US)
  Receive Date: 20231114
  Receipt Date: 20240108
  Transmission Date: 20240410
  Serious: No
  Sender: FDA-Public Use
  Company Number: US-BRISTOL-MYERS SQUIBB COMPANY-2023-162503

PATIENT
  Age: 66 Year
  Sex: Male
  Weight: 88.0 kg

DRUGS (2)
  1. POMALYST [Suspect]
     Active Substance: POMALIDOMIDE
     Indication: Plasma cell myeloma
     Route: 048
  2. POMALYST [Suspect]
     Active Substance: POMALIDOMIDE
     Route: 048
     Dates: start: 20221101

REACTIONS (3)
  - Full blood count decreased [Unknown]
  - Dyspnoea [Unknown]
  - Arthropathy [Unknown]

NARRATIVE: CASE EVENT DATE: 20231109
